FAERS Safety Report 23362509 (Version 1)
Quarter: 2024Q1

REPORT INFORMATION
  Report Type: Spontaneous
  Country: AU (occurrence: AU)
  Receive Date: 20240103
  Receipt Date: 20240103
  Transmission Date: 20240409
  Serious: Yes (Other)
  Sender: FDA-Public Use
  Company Number: AU-SAMSUNG BIOEPIS-SB-2023-34527

PATIENT
  Age: 16 Year
  Sex: Male

DRUGS (7)
  1. INFLIXIMAB [Suspect]
     Active Substance: INFLIXIMAB
     Indication: Product used for unknown indication
     Dosage: UNKNOWN
     Route: 042
  2. CYCLOSPORINE [Suspect]
     Active Substance: CYCLOSPORINE
     Indication: Product used for unknown indication
     Dosage: UNKNOWN
     Route: 065
  3. CLADRIBINE [Suspect]
     Active Substance: CLADRIBINE
     Indication: Product used for unknown indication
     Dosage: UNKNOWN
     Route: 042
  4. CYTARABINE [Suspect]
     Active Substance: CYTARABINE
     Indication: Product used for unknown indication
     Dosage: UNKNOWN
     Route: 042
  5. DEXAMETHASONE [Suspect]
     Active Substance: DEXAMETHASONE
     Indication: Product used for unknown indication
     Dosage: UNKNOWN
     Route: 048
  6. PREDNISONE [Suspect]
     Active Substance: PREDNISONE
     Indication: Product used for unknown indication
     Dosage: UNKNOWN
     Route: 042
  7. VINBLASTINE SULFATE [Suspect]
     Active Substance: VINBLASTINE SULFATE
     Indication: Product used for unknown indication
     Dosage: UNKNOWN
     Route: 042

REACTIONS (11)
  - Brain oedema [Recovered/Resolved]
  - Intracranial pressure increased [Recovered/Resolved]
  - Brain herniation [Unknown]
  - Hydrocephalus [Unknown]
  - Ataxia [Recovering/Resolving]
  - Central nervous system lesion [Recovering/Resolving]
  - Cognitive disorder [Recovering/Resolving]
  - Coma scale abnormal [Unknown]
  - Dysarthria [Unknown]
  - Headache [Unknown]
  - Vomiting [Unknown]
